FAERS Safety Report 14119410 (Version 1)
Quarter: 2017Q4

REPORT INFORMATION
  Report Type: Spontaneous
  Country: US (occurrence: None)
  Receive Date: 20171024
  Receipt Date: 20171024
  Transmission Date: 20180321
  Serious: Yes (Death, Hospitalization)
  Sender: FDA-Public Use
  Company Number: None

PATIENT
  Age: 8 Year
  Sex: Male
  Weight: 30.4 kg

DRUGS (4)
  1. VINCRISTINE SULFATE. [Suspect]
     Active Substance: VINCRISTINE SULFATE
     Dates: end: 20170913
  2. MERCAPTOPURINE. [Suspect]
     Active Substance: MERCAPTOPURINE
     Dates: end: 20170917
  3. DEXAMETHASONE. [Suspect]
     Active Substance: DEXAMETHASONE
     Dates: end: 20170917
  4. METHOTREXATE. [Suspect]
     Active Substance: METHOTREXATE
     Dates: end: 20170917

REACTIONS (23)
  - Epistaxis [None]
  - Respiratory arrest [None]
  - Rectal haemorrhage [None]
  - Shock [None]
  - Histiocytosis haematophagic [None]
  - Fall [None]
  - Haematochezia [None]
  - Mouth haemorrhage [None]
  - Alanine aminotransferase increased [None]
  - Bradycardia [None]
  - Coagulopathy [None]
  - Intestinal haemorrhage [None]
  - Hepatic failure [None]
  - Poor peripheral circulation [None]
  - Jaundice [None]
  - Hepatic enzyme increased [None]
  - Pulseless electrical activity [None]
  - Nausea [None]
  - Dizziness [None]
  - Therapy cessation [None]
  - Metabolic acidosis [None]
  - Poor venous access [None]
  - Decreased appetite [None]

NARRATIVE: CASE EVENT DATE: 20170919
